FAERS Safety Report 5712895-X (Version None)
Quarter: 2008Q2

REPORT INFORMATION
  Report Type: 
  Country: None (occurrence: None)
  Receive Date: 20080421
  Receipt Date: 20080421
  Transmission Date: 20081010
  Serious: Yes (Death, Hospitalization)
  Sender: FDA-Public Use
  Company Number: None

PATIENT
  Age: 39 Year
  Sex: Male

DRUGS (6)
  1. STAVUDINE (D4T) [Suspect]
     Indication: HIV INFECTION
     Dosage: 30 MG TWICE DAILY ORAL
     Route: 048
     Dates: start: 20050613, end: 20070524
  2. EFAVIRENZ (EFV) [Suspect]
     Indication: HIV INFECTION
     Dosage: 600 MG EVERY NIGHT ORAL
     Route: 048
     Dates: start: 20050613, end: 20070524
  3. LAMIVUDINE [Suspect]
     Indication: HIV INFECTION
     Dosage: 150 MG TWICE DAILY ORAL
     Route: 048
     Dates: start: 20050613, end: 20070524
  4. LASIX [Concomitant]
  5. ENALAPRIL MALEATE [Concomitant]
  6. ANTI-TUBERCULOSIS [Concomitant]

REACTIONS (18)
  - ABDOMINAL DISTENSION [None]
  - ANOREXIA [None]
  - ASPARTATE AMINOTRANSFERASE INCREASED [None]
  - BLOOD ALKALINE PHOSPHATASE INCREASED [None]
  - BLOOD BILIRUBIN INCREASED [None]
  - BLOOD CREATININE INCREASED [None]
  - BLOOD POTASSIUM INCREASED [None]
  - BLOOD SODIUM DECREASED [None]
  - BLOOD UREA INCREASED [None]
  - CARDIOMYOPATHY [None]
  - FATIGUE [None]
  - GAMMA-GLUTAMYLTRANSFERASE INCREASED [None]
  - INSOMNIA [None]
  - LACTIC ACIDOSIS [None]
  - MITOCHONDRIAL TOXICITY [None]
  - URINE OUTPUT INCREASED [None]
  - VOMITING [None]
  - WEIGHT DECREASED [None]
